FAERS Safety Report 15899732 (Version 4)
Quarter: 2020Q4

REPORT INFORMATION
  Report Type: Spontaneous
  Country: US (occurrence: US)
  Receive Date: 20190201
  Receipt Date: 20201123
  Transmission Date: 20210113
  Serious: No
  Sender: FDA-Public Use
  Company Number: US-PFIZER INC-2019037389

PATIENT
  Age: 53 Year
  Sex: Female
  Weight: 92.53 kg

DRUGS (8)
  1. METFORMIN [Concomitant]
     Active Substance: METFORMIN HYDROCHLORIDE
     Indication: DIABETES MELLITUS
     Dosage: 1000 MG, UNK
  2. LYRICA [Suspect]
     Active Substance: PREGABALIN
     Indication: NERVE INJURY
     Dosage: 300 MG, DAILY
     Dates: start: 20181220
  3. LYRICA [Suspect]
     Active Substance: PREGABALIN
     Indication: SCIATIC NERVE INJURY
     Dosage: 300 MG, 2X/DAY
     Route: 048
  4. OXYCONTIN [Concomitant]
     Active Substance: OXYCODONE HYDROCHLORIDE
     Indication: PAIN
     Dosage: 325 MG, AS NEEDED; (1 CAPSULE BY MOUTH AS NEEDED)
     Route: 048
     Dates: start: 20181207
  5. LYRICA [Suspect]
     Active Substance: PREGABALIN
     Indication: RHEUMATOID ARTHRITIS
  6. SOMA [Concomitant]
     Active Substance: CARISOPRODOL
     Indication: MYALGIA
     Dosage: 350 MG, AS NEEDED (1 TABLET BY MOUTH THREE TIMES DAILY AS NEEDED)
     Route: 048
  7. METFORMIN [Concomitant]
     Active Substance: METFORMIN HYDROCHLORIDE
     Dosage: 500 MG, 2X/DAY ( 1 TABLET BY MOUTH TWICE DAILY)
     Route: 048
  8. LYRICA [Suspect]
     Active Substance: PREGABALIN
     Indication: FIBROMYALGIA
     Dosage: 300 MG, 2X/DAY (1 CAPSULE BY MOUTH TWICE DAILY)
     Route: 048
     Dates: start: 2016

REACTIONS (3)
  - Pain [Not Recovered/Not Resolved]
  - Memory impairment [Unknown]
  - Intentional product use issue [Not Recovered/Not Resolved]

NARRATIVE: CASE EVENT DATE: 20181220
